FAERS Safety Report 6567823-4 (Version None)
Quarter: 2010Q1

REPORT INFORMATION
  Report Type: 
  Country: None (occurrence: None)
  Receive Date: 20100203
  Receipt Date: 20100125
  Transmission Date: 20100710
  Serious: Yes (Other)
  Sender: FDA-Public Use
  Company Number: US-JNJFOC-20100111169

PATIENT
  Sex: Female

DRUGS (3)
  1. REMICADE [Suspect]
     Indication: COLITIS ULCERATIVE
     Route: 042
     Dates: start: 20090721, end: 20091111
  2. REMICADE [Suspect]
     Route: 042
     Dates: start: 20090721, end: 20091111
  3. REMICADE [Suspect]
     Route: 042
     Dates: start: 20090721, end: 20091111

REACTIONS (1)
  - TONSILLECTOMY [None]
